FAERS Safety Report 9466134 (Version 4)
Quarter: 2016Q1

REPORT INFORMATION
  Report Type: Spontaneous
  Country: US (occurrence: US)
  Receive Date: 20130820
  Receipt Date: 20160121
  Transmission Date: 20160526
  Serious: Yes (Hospitalization, Disabling, Other)
  Sender: FDA-Public Use
  Company Number: US-009507513-1308USA008280

PATIENT
  Sex: Female
  Weight: 68.27 kg

DRUGS (2)
  1. FOSAMAX [Suspect]
     Active Substance: ALENDRONATE SODIUM
     Indication: OSTEOPOROSIS
     Dosage: 70 MG, QW
     Route: 048
     Dates: start: 200608, end: 200807
  2. ALENDRONATE SODIUM. [Suspect]
     Active Substance: ALENDRONATE SODIUM
     Indication: OSTEOPOROSIS
     Dosage: 70 MG, UNK
     Route: 048
     Dates: start: 20080626, end: 201109

REACTIONS (19)
  - Osteoporosis [Unknown]
  - Stress fracture [Unknown]
  - Femur fracture [Unknown]
  - Fracture nonunion [Unknown]
  - Temporomandibular joint syndrome [Unknown]
  - Muscular weakness [Unknown]
  - Low turnover osteopathy [Unknown]
  - Malpositioned teeth [Unknown]
  - Spinal column stenosis [Unknown]
  - Tooth disorder [Unknown]
  - Vitamin D deficiency [Unknown]
  - Radiculopathy [Unknown]
  - Bronchiectasis [Unknown]
  - Femur fracture [Unknown]
  - Tooth disorder [Unknown]
  - Tooth disorder [Unknown]
  - Scoliosis [Unknown]
  - Impaired healing [Unknown]
  - Drug hypersensitivity [Unknown]

NARRATIVE: CASE EVENT DATE: 20060806
